FAERS Safety Report 6145443-3 (Version None)
Quarter: 2009Q2

REPORT INFORMATION
  Report Type: 
  Country: None (occurrence: None)
  Receive Date: 20090402
  Receipt Date: 20090320
  Transmission Date: 20091009
  Serious: Yes (Other)
  Sender: FDA-Public Use
  Company Number: DSA_33409_2009

PATIENT
  Sex: Female

DRUGS (5)
  1. XENAZINE [Suspect]
     Indication: CEREBELLAR ATAXIA
     Dosage: 1/2 OF 12.5 MG TAB TID, NEARLY 50 MG A DAY
     Dates: end: 20090301
  2. XENAZINE [Suspect]
     Indication: CEREBELLAR ATAXIA
     Dosage: 1/2 OF 12.5 MG TAB TID, NEARLY 50 MG A DAY
     Dates: start: 20090301, end: 20090313
  3. VALIUM [Concomitant]
  4. PREPHASE [Concomitant]
  5. BENICAR [Concomitant]

REACTIONS (4)
  - CONFUSIONAL STATE [None]
  - DRUG PRESCRIBING ERROR [None]
  - FALL [None]
  - GAIT DISTURBANCE [None]
